FAERS Safety Report 14616784 (Version 2)
Quarter: 2018Q2

REPORT INFORMATION
  Report Type: Spontaneous
  Country: GR (occurrence: GR)
  Receive Date: 20180309
  Receipt Date: 20180523
  Transmission Date: 20180711
  Serious: Yes (Other)
  Sender: FDA-Public Use
  Company Number: GR-009507513-1803GRC001416

PATIENT
  Sex: Female

DRUGS (1)
  1. ORGALUTRAN [Suspect]
     Active Substance: GANIRELIX ACETATE

REACTIONS (4)
  - Product storage error [Unknown]
  - Drug ineffective [Unknown]
  - Product quality issue [Unknown]
  - Blood luteinising hormone increased [Unknown]
